FAERS Safety Report 4523130-2 (Version None)
Quarter: 2004Q4

REPORT INFORMATION
  Report Type: 
  Country: None (occurrence: None)
  Receive Date: 20041208
  Receipt Date: 20041208
  Transmission Date: 20050328
  Serious: Yes (Other)
  Sender: FDA-Public Use
  Company Number: 2004090807

PATIENT
  Age: 50 Year
  Sex: Female

DRUGS (2)
  1. ALPRAZOLAM [Suspect]
     Indication: ANXIETY
     Dosage: 2 MG (1 IN 1 D), ORAL
     Route: 048
  2. ANASTROZOLE (ANASTROZOLE) [Concomitant]

REACTIONS (5)
  - BREAST CANCER [None]
  - DRUG INEFFECTIVE [None]
  - INTENTIONAL MISUSE [None]
  - SOMNOLENCE [None]
  - STRESS SYMPTOMS [None]
